FAERS Safety Report 9364609 (Version 2)
Quarter: 2013Q4

REPORT INFORMATION
  Report Type: Spontaneous
  Country: US (occurrence: US)
  Receive Date: 20130624
  Receipt Date: 20131212
  Transmission Date: 20140711
  Serious: Yes (Other)
  Sender: FDA-Public Use
  Company Number: US-PERRIGO-13US006406

PATIENT
  Age: 42 Year
  Sex: Female
  Weight: 79.37 kg

DRUGS (2)
  1. MINOXIDIL 2% WOMEN 202 [Suspect]
     Indication: ANDROGENETIC ALOPECIA
     Dosage: 1 ML, BID
     Route: 061
     Dates: start: 20130521, end: 20130524
  2. VITAMINS [Concomitant]
     Indication: SUPPLEMENTATION THERAPY
     Dosage: UNK
     Route: 048

REACTIONS (17)
  - Hypersensitivity [Recovered/Resolved]
  - Dysarthria [Recovered/Resolved]
  - Dizziness [Recovered/Resolved]
  - Throat tightness [Recovered/Resolved]
  - Cough [Recovered/Resolved]
  - Headache [Recovered/Resolved]
  - Palpitations [Unknown]
  - Asthenia [Unknown]
  - Disturbance in attention [Unknown]
  - Nausea [Unknown]
  - Dyspnoea [Unknown]
  - Irritability [Unknown]
  - Myalgia [Unknown]
  - Fatigue [Unknown]
  - Wheezing [Unknown]
  - Musculoskeletal chest pain [Unknown]
  - Chest pain [Unknown]
